FAERS Safety Report 6071263-4 (Version None)
Quarter: 2009Q1

REPORT INFORMATION
  Report Type: 
  Country: None (occurrence: None)
  Receive Date: 20090204
  Receipt Date: 20090127
  Transmission Date: 20090719
  Serious: Yes (Death, Other)
  Sender: FDA-Public Use
  Company Number: 2009JP000450

PATIENT
  Age: 44 Year
  Sex: Male

DRUGS (5)
  1. PROGRAF(TACROLIMIS) [Suspect]
     Indication: STEM CELL TRANSPLANT
     Dosage: /D; 0.5 MG, QOD
  2. STEROID FORMULATION [Concomitant]
  3. ANTIBIOTIC (POLYMYXIN B SULFATE) FORMULATION [Concomitant]
  4. PANIPENEM (PANIPENEM) [Concomitant]
  5. BETAMIPRON [Concomitant]

REACTIONS (8)
  - ADRENAL HAEMORRHAGE [None]
  - ATROPHY [None]
  - BLOOD PRESSURE DECREASED [None]
  - CONGESTIVE CARDIOMYOPATHY [None]
  - DISSEMINATED INTRAVASCULAR COAGULATION [None]
  - GRAFT VERSUS HOST DISEASE [None]
  - PNEUMOCOCCAL SEPSIS [None]
  - SPLEEN DISORDER [None]
